FAERS Safety Report 4620791-4 (Version None)
Quarter: 2005Q1

REPORT INFORMATION
  Report Type: 
  Country: None (occurrence: None)
  Receive Date: 20050325
  Receipt Date: 20050314
  Transmission Date: 20050727
  Serious: Yes (Death)
  Sender: FDA-Public Use
  Company Number: 2005044379

PATIENT
  Age: 47 Year
  Sex: Male

DRUGS (2)
  1. GEODON [Suspect]
     Indication: BIPOLAR DISORDER
     Dosage: 60 MG (20 MG, 3 IN 1 D), INTRAMUSCULAR
     Route: 030
  2. HALOPERIDOL [Suspect]
     Indication: PSYCHOTIC DISORDER
     Dosage: 10 MG

REACTIONS (2)
  - CARDIAC ARREST [None]
  - PSYCHOTIC DISORDER [None]
